FAERS Safety Report 8414335-9 (Version None)
Quarter: 2012Q2

REPORT INFORMATION
  Report Type: 
  Country: None (occurrence: None)
  Receive Date: 20120605
  Receipt Date: 20120523
  Transmission Date: 20120825
  Serious: Yes (Hospitalization, Other)
  Sender: FDA-Public Use
  Company Number: GB-ROCHE-1071877

PATIENT
  Sex: Female
  Weight: 82 kg

DRUGS (1)
  1. MABTHERA [Suspect]
     Indication: PRODUCT USED FOR UNKNOWN INDICATION
     Dosage: LAST DOSE PRIOR TO SAE 03 MAR 2011
     Dates: start: 20070301

REACTIONS (13)
  - PNEUMONIA [None]
  - C-REACTIVE PROTEIN INCREASED [None]
  - CHEST X-RAY ABNORMAL [None]
  - MITRAL VALVE INCOMPETENCE [None]
  - WHITE BLOOD CELL COUNT INCREASED [None]
  - LIVER DISORDER [None]
  - URINARY TRACT INFECTION ENTEROCOCCAL [None]
  - UNRESPONSIVE TO STIMULI [None]
  - PRODUCTIVE COUGH [None]
  - JOINT SWELLING [None]
  - UNEVALUABLE EVENT [None]
  - CONFUSIONAL STATE [None]
  - LIVER FUNCTION TEST ABNORMAL [None]
